FAERS Safety Report 4933349-4 (Version None)
Quarter: 2006Q1

REPORT INFORMATION
  Report Type: 
  Country: None (occurrence: None)
  Receive Date: 20060306
  Receipt Date: 20050928
  Transmission Date: 20060701
  Serious: Yes (Hospitalization, Disabling)
  Sender: FDA-Public Use
  Company Number: US-MERCK-0510USA00627

PATIENT
  Age: 75 Year
  Sex: Female

DRUGS (1)
  1. VIOXX [Suspect]
     Route: 048
     Dates: start: 20001101, end: 20030101

REACTIONS (18)
  - ACUTE MYOCARDIAL INFARCTION [None]
  - ANGINA UNSTABLE [None]
  - ANXIETY [None]
  - APNOEA [None]
  - BACK DISORDER [None]
  - BLADDER DISORDER [None]
  - CARDIOVASCULAR DISORDER [None]
  - CORONARY ARTERY DISEASE [None]
  - DIARRHOEA [None]
  - DIZZINESS [None]
  - HAEMORRHOIDS [None]
  - HYPOAESTHESIA [None]
  - INJURY [None]
  - IRRITABLE BOWEL SYNDROME [None]
  - LABILE HYPERTENSION [None]
  - NON-CARDIAC CHEST PAIN [None]
  - PEPTIC ULCER [None]
  - VOMITING [None]
